FAERS Safety Report 4518066-7 (Version None)
Quarter: 2004Q4

REPORT INFORMATION
  Report Type: 
  Country: None (occurrence: None)
  Receive Date: 20041203
  Receipt Date: 20040810
  Transmission Date: 20050328
  Serious: Yes (Other)
  Sender: FDA-Public Use
  Company Number: JP-GLAXOSMITHKLINE-B0342692A

PATIENT
  Age: 71 Year
  Sex: Female
  Weight: 60 kg

DRUGS (7)
  1. ZOVIRAX [Suspect]
     Indication: HERPES ZOSTER
     Route: 048
     Dates: start: 20040807, end: 20040809
  2. VALTREX [Suspect]
     Dosage: 1000MG THREE TIMES PER DAY
     Route: 048
     Dates: start: 20040808
  3. LOXOPROFEN [Suspect]
     Indication: PAIN
     Dosage: 60MG THREE TIMES PER DAY
     Route: 048
     Dates: start: 20040810, end: 20040823
  4. CYANOCOBALAMIN [Concomitant]
     Indication: PAIN
     Route: 048
     Dates: start: 20040810
  5. SELBEX [Concomitant]
     Indication: GASTRITIS
     Route: 048
     Dates: start: 20040810, end: 20040823
  6. NEUROTROPIN [Concomitant]
     Indication: PAIN
     Route: 048
     Dates: start: 20040810
  7. VIDARABINE [Concomitant]
     Indication: HERPES ZOSTER
     Dosage: 300MG PER DAY
     Route: 042

REACTIONS (8)
  - BLOOD CREATININE INCREASED [None]
  - BLOOD UREA INCREASED [None]
  - CREATININE RENAL CLEARANCE DECREASED [None]
  - DEHYDRATION [None]
  - HALLUCINATION [None]
  - HALLUCINATION, VISUAL [None]
  - RENAL DISORDER [None]
  - RENAL FAILURE ACUTE [None]
